FAERS Safety Report 15645759 (Version 2)
Quarter: 2018Q4

REPORT INFORMATION
  Report Type: Spontaneous
  Country: FR (occurrence: FR)
  Receive Date: 20181121
  Receipt Date: 20181226
  Transmission Date: 20190205
  Serious: Yes (Other)
  Sender: FDA-Public Use
  Company Number: PHHY2018FR153842

PATIENT
  Age: 75 Year
  Sex: Female

DRUGS (1)
  1. ENALAPRIL [Suspect]
     Active Substance: ENALAPRIL
     Indication: ANGIOEDEMA
     Dosage: UNK
     Route: 048

REACTIONS (5)
  - Acquired C1 inhibitor deficiency [Unknown]
  - Face oedema [Unknown]
  - Product use in unapproved indication [Unknown]
  - Laryngeal oedema [Unknown]
  - Angioedema [Unknown]
